FAERS Safety Report 13294030 (Version 1)
Quarter: 2017Q1

REPORT INFORMATION
  Report Type: Spontaneous
  Country: BR (occurrence: BR)
  Receive Date: 20170303
  Receipt Date: 20170303
  Transmission Date: 20170428
  Serious: Yes (Hospitalization, Other)
  Sender: FDA-Public Use
  Company Number: BR-ELI_LILLY_AND_COMPANY-BR201702009011

PATIENT
  Sex: Female
  Weight: 70 kg

DRUGS (16)
  1. BROMOPRIDA [Concomitant]
     Indication: NAUSEA
     Dosage: 10 MG, BID
     Route: 065
     Dates: start: 2009
  2. DIAZEPAN [Concomitant]
     Active Substance: DIAZEPAM
     Indication: ANXIETY
  3. OLANZAPINE. [Suspect]
     Active Substance: OLANZAPINE
     Indication: BIPOLAR DISORDER
  4. VENLAFAXINA                        /01233801/ [Concomitant]
     Indication: DEPRESSION
     Dosage: 75 MG, UNKNOWN
     Route: 065
  5. OXCARBAZEPINA [Concomitant]
     Active Substance: OXCARBAZEPINE
     Indication: PRODUCT USED FOR UNKNOWN INDICATION
     Dosage: UNK, BID
     Route: 048
     Dates: start: 2006
  6. DIAZEPAN [Concomitant]
     Active Substance: DIAZEPAM
     Indication: PANIC DISORDER
     Dosage: 2 DF, QD
     Route: 065
  7. IBUPROFENO [Concomitant]
     Active Substance: IBUPROFEN
     Indication: MIGRAINE
     Dosage: 600 MG, UNKNOWN
     Route: 065
  8. OLCADIL [Concomitant]
     Active Substance: CLOXAZOLAM
     Indication: PRODUCT USED FOR UNKNOWN INDICATION
     Dosage: 2 MG, BID
     Route: 065
     Dates: start: 2002
  9. OMEPRAZOL                          /00661201/ [Concomitant]
     Active Substance: OMEPRAZOLE
     Indication: PRODUCT USED FOR UNKNOWN INDICATION
     Dosage: 20 MG, UNKNOWN
  10. SUMAX                              /01044801/ [Concomitant]
     Indication: PRODUCT USED FOR UNKNOWN INDICATION
     Dosage: 25 MG, UNKNOWN
     Route: 065
  11. HOMEOPATHIC PREPARATION [Concomitant]
     Active Substance: HOMEOPATHICS
     Indication: CONSTIPATION
     Dosage: 5 DF, QD
     Route: 048
  12. VENLAFAXINA                        /01233801/ [Concomitant]
     Dosage: 150 MG, UNKNOWN
     Route: 065
  13. DIPIRONA [Concomitant]
     Active Substance: METAMIZOLE
     Indication: PRODUCT USED FOR UNKNOWN INDICATION
     Dosage: UNK, UNKNOWN
     Route: 065
  14. OLANZAPINE. [Suspect]
     Active Substance: OLANZAPINE
     Indication: MAJOR DEPRESSION
     Dosage: UNK, UNKNOWN
     Route: 065
  15. OLANZAPINE. [Suspect]
     Active Substance: OLANZAPINE
     Indication: BORDERLINE PERSONALITY DISORDER
  16. FENERGAN                           /00033001/ [Concomitant]
     Active Substance: PROMETHAZINE HYDROCHLORIDE
     Indication: PRODUCT USED FOR UNKNOWN INDICATION
     Dosage: 25 MG, QD
     Route: 065
     Dates: start: 2015

REACTIONS (10)
  - Seizure [Unknown]
  - Loss of consciousness [Unknown]
  - Weight increased [Unknown]
  - Nervousness [Unknown]
  - Sciatic nerve injury [Unknown]
  - Fall [Unknown]
  - Spinal disorder [Unknown]
  - Syncope [Unknown]
  - Head injury [Unknown]
  - Arthropathy [Unknown]
